FAERS Safety Report 23487417 (Version 1)
Quarter: 2024Q1

REPORT INFORMATION
  Report Type: Report from Study
  Country: CA (occurrence: CA)
  Receive Date: 20240206
  Receipt Date: 20240206
  Transmission Date: 20240409
  Serious: Yes (Other)
  Sender: FDA-Public Use
  Company Number: CA-OTSUKA-2021_027481

PATIENT
  Age: 82 Year
  Sex: Female

DRUGS (4)
  1. CEDAZURIDINE\DECITABINE [Suspect]
     Active Substance: CEDAZURIDINE\DECITABINE
     Indication: Myelodysplastic syndrome
     Dosage: UNK, QD (5 DAYS IN CYCLE)
     Route: 048
     Dates: start: 20210212
  2. CEDAZURIDINE\DECITABINE [Suspect]
     Active Substance: CEDAZURIDINE\DECITABINE
     Dosage: UNK, QD (4 DAYS IN CYCLE)
     Route: 048
  3. CEDAZURIDINE\DECITABINE [Suspect]
     Active Substance: CEDAZURIDINE\DECITABINE
     Dosage: EVERY 35 DAYS CYCLE
     Route: 065
  4. CEDAZURIDINE\DECITABINE [Suspect]
     Active Substance: CEDAZURIDINE\DECITABINE
     Dosage: 1 DF (35 MG DECITABINE AND 100 MG CEDAZURIDINE), QD (ON DAYS 1 TO 4 EVERY 35 DAYS)
     Route: 048

REACTIONS (16)
  - Coronary artery occlusion [Unknown]
  - Presyncope [Unknown]
  - Gastrointestinal disorder [Unknown]
  - Chest pain [Recovering/Resolving]
  - Joint swelling [Unknown]
  - Arthralgia [Unknown]
  - Hypotension [Unknown]
  - Hypotension [Recovered/Resolved]
  - Insomnia [Unknown]
  - Dyspnoea [Unknown]
  - Dyspnoea [Recovering/Resolving]
  - COVID-19 [Recovering/Resolving]
  - White blood cell count decreased [Unknown]
  - White blood cell count decreased [Unknown]
  - Neutrophil count decreased [Unknown]
  - Inappropriate schedule of product administration [Unknown]

NARRATIVE: CASE EVENT DATE: 20230522
